FAERS Safety Report 7120991-8 (Version None)
Quarter: 2010Q4

REPORT INFORMATION
  Report Type: 
  Country: None (occurrence: None)
  Receive Date: 20101124
  Receipt Date: 20100223
  Transmission Date: 20110411
  Serious: No
  Sender: FDA-Public Use
  Company Number: US-PFIZER INC-2010010656

PATIENT
  Sex: Male
  Weight: 83.9 kg

DRUGS (7)
  1. TIKOSYN [Suspect]
     Indication: ATRIAL FIBRILLATION
     Dosage: 250 UG, 2X/DAY
     Dates: start: 20090101
  2. VASOTEC [Concomitant]
     Indication: HYPERTENSION
     Dosage: UNK
  3. PRILOSEC [Concomitant]
  4. XANAX [Concomitant]
     Indication: ANXIETY
     Dosage: UNK
  5. VICODIN [Concomitant]
     Dosage: UNK
  6. MAGNESIUM [Concomitant]
     Dosage: UNK
  7. SPIRIVA [Concomitant]
     Indication: CHRONIC OBSTRUCTIVE PULMONARY DISEASE
     Dosage: DAILY

REACTIONS (2)
  - EXTRASYSTOLES [None]
  - FLATULENCE [None]
